FAERS Safety Report 4693020-3 (Version None)
Quarter: 2005Q2

REPORT INFORMATION
  Report Type: 
  Country: None (occurrence: None)
  Receive Date: 20050615
  Receipt Date: 20050602
  Transmission Date: 20051028
  Serious: Yes (Death, Other)
  Sender: FDA-Public Use
  Company Number: 2005083855

PATIENT
  Sex: Female
  Weight: 97.5234 kg

DRUGS (2)
  1. LIPITOR [Suspect]
     Indication: BLOOD CHOLESTEROL
     Dosage: BID INTERVAL:  BID, ORAL
     Route: 048
     Dates: start: 19990501, end: 20001201
  2. INSULIN [Concomitant]

REACTIONS (2)
  - ASTHENIA [None]
  - MYOCARDIAL INFARCTION [None]
